FAERS Safety Report 13294028 (Version 2)
Quarter: 2017Q1

REPORT INFORMATION
  Report Type: Spontaneous
  Country: US (occurrence: US)
  Receive Date: 20170303
  Receipt Date: 20170307
  Transmission Date: 20170428
  Serious: Yes (Other)
  Sender: FDA-Public Use
  Company Number: US-ELI_LILLY_AND_COMPANY-US201608003899

PATIENT
  Sex: Male

DRUGS (2)
  1. CYMBALTA [Suspect]
     Active Substance: DULOXETINE HYDROCHLORIDE
     Indication: AFFECTIVE DISORDER
  2. CYMBALTA [Suspect]
     Active Substance: DULOXETINE HYDROCHLORIDE
     Indication: BIPOLAR DISORDER
     Dosage: UNK, UNKNOWN
     Route: 048

REACTIONS (26)
  - Constipation [Unknown]
  - Agitation [Unknown]
  - Confusional state [Unknown]
  - Fatigue [Unknown]
  - Diarrhoea [Unknown]
  - Hyperhidrosis [Unknown]
  - Seizure [Unknown]
  - Paranoia [Unknown]
  - Hallucination [Unknown]
  - Vomiting [Unknown]
  - Lethargy [Unknown]
  - Mood swings [Unknown]
  - Drug withdrawal syndrome [Unknown]
  - Depression [Unknown]
  - Paraesthesia [Unknown]
  - Tremor [Unknown]
  - Hypomania [Unknown]
  - Nausea [Unknown]
  - Irritability [Unknown]
  - Suicidal ideation [Unknown]
  - Vertigo [Unknown]
  - Tinnitus [Unknown]
  - Dizziness [Unknown]
  - Anxiety [Unknown]
  - Headache [Unknown]
  - Insomnia [Unknown]
